FAERS Safety Report 22234428 (Version 1)
Quarter: 2023Q2

REPORT INFORMATION
  Report Type: Spontaneous
  Country: US (occurrence: None)
  Receive Date: 20230418
  Receipt Date: 20230418
  Transmission Date: 20230721
  Serious: Yes (Hospitalization)
  Sender: FDA-Public Use
  Company Number: None

PATIENT
  Age: 52 Year
  Sex: Male

DRUGS (1)
  1. XELODA [Suspect]
     Active Substance: CAPECITABINE
     Dosage: FREQUENCY : TWICE A DAY;?
     Route: 048

REACTIONS (8)
  - Internal haemorrhage [None]
  - Therapy interrupted [None]
  - Haemoglobin decreased [None]
  - Hypotension [None]
  - Atrial fibrillation [None]
  - Abdominal discomfort [None]
  - Fatigue [None]
  - Colonoscopy [None]

NARRATIVE: CASE EVENT DATE: 20230410
